FAERS Safety Report 5345702-8 (Version None)
Quarter: 2007Q2

REPORT INFORMATION
  Report Type: 
  Country: None (occurrence: None)
  Receive Date: 20070605
  Receipt Date: 20070529
  Transmission Date: 20071010
  Serious: Yes (Other)
  Sender: FDA-Public Use
  Company Number: PHNU2007DE01956

PATIENT
  Sex: Male

DRUGS (1)
  1. EXFORGE [Suspect]
     Dosage: 1 DF, QD
     Route: 048
     Dates: start: 20070226, end: 20070524

REACTIONS (3)
  - OEDEMA PERIPHERAL [None]
  - STASIS DERMATITIS [None]
  - WEIGHT INCREASED [None]
